FAERS Safety Report 7622349-1 (Version None)
Quarter: 2011Q3

REPORT INFORMATION
  Report Type: 
  Country: None (occurrence: None)
  Receive Date: 20110715
  Receipt Date: 20110715
  Transmission Date: 20111222
  Serious: Yes (Other)
  Sender: FDA-Public Use
  Company Number: None

PATIENT
  Age: 47 Year
  Sex: Female

DRUGS (1)
  1. LEVOTHYROXINE SODIUM [Suspect]
     Indication: HYPOTHYROIDISM
     Dosage: 200 MCG DAILY BY MOUTH
     Route: 048
     Dates: start: 20090423

REACTIONS (3)
  - HEADACHE [None]
  - DIARRHOEA [None]
  - NAUSEA [None]
